FAERS Safety Report 18600564 (Version 6)
Quarter: 2021Q4

REPORT INFORMATION
  Report Type: Spontaneous
  Country: IN (occurrence: IN)
  Receive Date: 20201210
  Receipt Date: 20211110
  Transmission Date: 20220303
  Serious: Yes (Other)
  Sender: FDA-Public Use
  Company Number: IN-PFIZER INC-2020482052

PATIENT
  Age: 65 Year
  Sex: Female

DRUGS (9)
  1. PALBOCICLIB [Suspect]
     Active Substance: PALBOCICLIB
     Indication: Breast cancer metastatic
     Dosage: 125 MG, CYCLIC (ONCE DAILY FOR 21/28DAYS)
     Route: 048
     Dates: start: 20190829
  2. PALBOCICLIB [Suspect]
     Active Substance: PALBOCICLIB
     Dosage: 125 MG, CYCLIC (ONCE DAILY FOR 21 DAYS)
     Route: 048
     Dates: start: 20200828
  3. FEMARA [Concomitant]
     Active Substance: LETROZOLE
     Dosage: 2.5 MG 1-0-0 X 28DAYS
  4. ZOLEDRONIC ACID [Concomitant]
     Active Substance: ZOLEDRONIC ACID
     Indication: Metastases to bone
     Dosage: 4MG IN 100ML NS IV OVER 1/2 HR
     Route: 042
     Dates: start: 20200906
  5. ZOLEDRONIC ACID [Concomitant]
     Active Substance: ZOLEDRONIC ACID
     Dosage: UNK, MONTHLY
  6. CALCIUM\CHOLECALCIFEROL [Concomitant]
     Active Substance: CALCIUM\CHOLECALCIFEROL
     Dosage: 1-0-1 X 28DAYS
  7. DOMPERIDONE\PANTOPRAZOLE SODIUM [Concomitant]
     Active Substance: DOMPERIDONE\PANTOPRAZOLE SODIUM
     Indication: Gastrooesophageal reflux disease
     Dosage: (1-0-0) X 28DAYS
  8. DOMPERIDONE\PANTOPRAZOLE SODIUM [Concomitant]
     Active Substance: DOMPERIDONE\PANTOPRAZOLE SODIUM
     Dosage: (1-0-1) X 28 DAYS
  9. PREGALEO M [Concomitant]
     Dosage: (1-0-1) X 15 DAYS

REACTIONS (4)
  - Type 2 diabetes mellitus [Unknown]
  - Pain [Unknown]
  - Oedema peripheral [Unknown]
  - Essential hypertension [Unknown]
